FAERS Safety Report 14353172 (Version 1)
Quarter: 2018Q1

REPORT INFORMATION
  Report Type: Spontaneous
  Country: FR (occurrence: FR)
  Receive Date: 20180104
  Receipt Date: 20180104
  Transmission Date: 20180509
  Serious: Yes (Hospitalization)
  Sender: FDA-Public Use
  Company Number: FR-MERCK KGAA-2038416

PATIENT
  Age: 91 Year
  Sex: Female

DRUGS (15)
  1. PRETERAX [Suspect]
     Active Substance: INDAPAMIDE\PERINDOPRIL
     Route: 048
  2. NORSET [Suspect]
     Active Substance: MIRTAZAPINE
     Route: 048
  3. KARDEGIC [Concomitant]
     Active Substance: ASPIRIN DL-LYSINE
  4. LEVOTHYROXINE SODIUM. [Suspect]
     Active Substance: LEVOTHYROXINE SODIUM
     Route: 048
  5. SERESTA [Suspect]
     Active Substance: OXAZEPAM
     Route: 048
  6. LYRICA [Suspect]
     Active Substance: PREGABALIN
     Route: 048
  7. RILMENIDINE [Suspect]
     Active Substance: RILMENIDINE
     Route: 048
     Dates: start: 20141124, end: 20141201
  8. UVEDOSE [Concomitant]
     Active Substance: CHOLECALCIFEROL
  9. MODOPAR(MADOPAR) [Concomitant]
  10. LOXEN (NICARDIPINE HYDROCHLORIDE) [Suspect]
     Active Substance: NICARDIPINE HYDROCHLORIDE
  11. LERCANIDIPINE [Suspect]
     Active Substance: LERCANIDIPINE
     Route: 048
  12. TRANSIPEGLIB [Concomitant]
  13. NOCTAMIDE [Suspect]
     Active Substance: LORMETAZEPAM
     Route: 048
     Dates: end: 20141201
  14. NOVOTHYROX [Suspect]
     Active Substance: LEVOTHYROXINE SODIUM
     Indication: AUTOIMMUNE THYROIDITIS
     Route: 048
  15. SELOKEN [Suspect]
     Active Substance: METOPROLOL
     Route: 048

REACTIONS (2)
  - Confusional state [Recovered/Resolved]
  - Fall [Recovered/Resolved]

NARRATIVE: CASE EVENT DATE: 20141201
